FAERS Safety Report 11123585 (Version 5)
Quarter: 2015Q3

REPORT INFORMATION
  Report Type: Spontaneous
  Country: ES (occurrence: ES)
  Receive Date: 20150519
  Receipt Date: 20150924
  Transmission Date: 20151125
  Serious: Yes (Other)
  Sender: FDA-Public Use
  Company Number: ES-AMGEN-ESPSP2015046364

PATIENT
  Age: 50 Year
  Sex: Female

DRUGS (7)
  1. ENBREL [Suspect]
     Active Substance: ETANERCEPT
     Indication: RHEUMATOID ARTHRITIS
     Dosage: 50 MG, WEEKLY
     Route: 058
     Dates: start: 20140828, end: 20150522
  2. ARAVA [Concomitant]
     Active Substance: LEFLUNOMIDE
     Indication: BONE DISORDER
     Dosage: 1 DF, 1X/DAY
  3. TRANKIMAZIN [Concomitant]
     Active Substance: ALPRAZOLAM
     Indication: INSOMNIA
     Dosage: UNK
  4. PREDNISONE. [Concomitant]
     Active Substance: PREDNISONE
     Dosage: 30 MG, 1X/DAY
     Dates: start: 2015
  5. PREDNISONE. [Concomitant]
     Active Substance: PREDNISONE
     Indication: RHEUMATOID ARTHRITIS
     Dosage: 5 MG, 1X/DAY
     Dates: end: 2015
  6. ROCOZ                              /01270902/ [Concomitant]
     Active Substance: QUETIAPINE FUMARATE
     Indication: ANXIETY
     Dosage: UNK, AS NEEDED
  7. DILIBAN [Concomitant]
     Indication: ANALGESIC THERAPY
     Dosage: 1DF, 3X/DAY(ONE TABLET EVERY 8 HOURS

REACTIONS (7)
  - Malaise [Not Recovered/Not Resolved]
  - Inflammation [Unknown]
  - Erythema [Recovered/Resolved]
  - Arthritis [Not Recovered/Not Resolved]
  - Swelling [Recovered/Resolved]
  - Swelling face [Recovering/Resolving]
  - Drug ineffective [Unknown]

NARRATIVE: CASE EVENT DATE: 20140828
